FAERS Safety Report 6407006-1 (Version None)
Quarter: 2009Q4

REPORT INFORMATION
  Report Type: 
  Country: None (occurrence: None)
  Receive Date: 20091020
  Receipt Date: 20091007
  Transmission Date: 20100525
  Serious: Yes (Other)
  Sender: FDA-Public Use
  Company Number: PHHY2009DE43614

PATIENT
  Sex: Female
  Weight: 68 kg

DRUGS (2)
  1. CGS 20267 T30748+ [Suspect]
     Indication: BREAST CANCER
     Dosage: 2.5 MG/DAY
     Route: 048
     Dates: start: 20090407
  2. MICARDIS HCT [Concomitant]
     Dosage: UNK
     Dates: start: 20040101

REACTIONS (1)
  - CARPAL TUNNEL SYNDROME [None]
